FAERS Safety Report 22647799 (Version 1)
Quarter: 2023Q2

REPORT INFORMATION
  Report Type: Spontaneous
  Country: CN (occurrence: CN)
  Receive Date: 20230628
  Receipt Date: 20230628
  Transmission Date: 20230721
  Serious: Yes (Death, Life-Threatening, Other)
  Sender: FDA-Public Use
  Company Number: CN-QILU TIANHE PHARMACEUTICAL CO. LTD-QLT-000010-2023

PATIENT
  Age: 79 Year
  Sex: Male

DRUGS (7)
  1. PIPERACILLIN AND TAZOBACTAM [Suspect]
     Active Substance: PIPERACILLIN SODIUM\TAZOBACTAM SODIUM
     Indication: Pneumonia
     Dosage: FIRST COURSE, ON 8TH DAY OF ADMISSION
     Route: 042
  2. PIPERACILLIN AND TAZOBACTAM [Suspect]
     Active Substance: PIPERACILLIN SODIUM\TAZOBACTAM SODIUM
     Dosage: SECOND COURSE, FROM 49 TO 53 DAYS AFTER ADMISSION
     Route: 042
  3. PIPERACILLIN AND TAZOBACTAM [Suspect]
     Active Substance: PIPERACILLIN SODIUM\TAZOBACTAM SODIUM
     Dosage: THIRD COURSE, ON THE 77TH DAY AFTER ADMISSION
     Route: 042
  4. ERYTHROPOIETIN [Concomitant]
     Active Substance: ERYTHROPOIETIN
     Indication: Product used for unknown indication
     Dosage: UNKNOWN
     Route: 065
  5. Leukocyte-reduced red blood cells [Concomitant]
     Indication: Product used for unknown indication
     Dosage: PREPARED FROM 600 ML OF WHOLE BLOOD, AFTER ADMISSION
     Route: 065
  6. Leukocyte-reduced red blood cells [Concomitant]
     Dosage: PREPARED FROM 1400 ML OF WHOLE BLOOD, DURING AND AFTER THE COURSE OFTREATMENT
     Route: 065
  7. Leukocyte-reduced red blood cells [Concomitant]
     Dosage: PREPARED FROM 3200 ML OF WHOLE BLOOD, DURING THE THIRD COURSE OF TREATMENT WITH PIP-TAZ
     Route: 065

REACTIONS (3)
  - Multiple organ dysfunction syndrome [Fatal]
  - Autoimmune haemolytic anaemia [Not Recovered/Not Resolved]
  - Renal impairment [Not Recovered/Not Resolved]
